FAERS Safety Report 9631622 (Version 1)
Quarter: 2013Q4

REPORT INFORMATION
  Report Type: Spontaneous
  Country: US (occurrence: US)
  Receive Date: 20131018
  Receipt Date: 20131018
  Transmission Date: 20140711
  Serious: No
  Sender: FDA-Public Use
  Company Number: US-PFIZER INC-2013297710

PATIENT
  Sex: Female

DRUGS (2)
  1. LYRICA [Suspect]
     Indication: SPINAL PAIN
     Dosage: UNK
     Dates: start: 201307
  2. LYRICA [Suspect]
     Dosage: 300 MG, DAILY

REACTIONS (1)
  - Drug ineffective [Unknown]
